FAERS Safety Report 5042947-1 (Version None)
Quarter: 2006Q2

REPORT INFORMATION
  Report Type: 
  Country: None (occurrence: None)
  Receive Date: 20060627
  Receipt Date: 20060610
  Transmission Date: 20061013
  Serious: Yes (Congenital Anomaly)
  Sender: FDA-Public Use
  Company Number: FR200606003162

PATIENT
  Age: 1 Day
  Sex: Female
  Weight: 3 kg

DRUGS (2)
  1. ZYPREXA [Suspect]
     Indication: SCHIZOPHRENIA
     Dosage: TRANSPLACENTAL 5 MG, DAILY (1/D)
     Route: 064
     Dates: start: 20050601, end: 20051020
  2. ZYPREXA [Suspect]
     Indication: SCHIZOPHRENIA
     Dosage: TRANSPLACENTAL 5 MG, DAILY (1/D)
     Route: 064
     Dates: end: 20051020

REACTIONS (6)
  - ALCOHOL USE [None]
  - DELIRIUM [None]
  - DRUG ABUSER [None]
  - DRUG EXPOSURE DURING PREGNANCY [None]
  - REFUSAL OF TREATMENT BY PATIENT [None]
  - TRISOMY 21 [None]
